FAERS Safety Report 22218305 (Version 3)
Quarter: 2023Q2

REPORT INFORMATION
  Report Type: Spontaneous
  Country: DE (occurrence: DE)
  Receive Date: 20230417
  Receipt Date: 20230607
  Transmission Date: 20230721
  Serious: Yes (Hospitalization, Other)
  Sender: FDA-Public Use
  Company Number: None

PATIENT
  Age: 78 Year
  Sex: Male
  Weight: 70 kg

DRUGS (6)
  1. CLINDAMYCIN HYDROCHLORIDE [Suspect]
     Active Substance: CLINDAMYCIN HYDROCHLORIDE
     Indication: Dental implantation
     Dosage: 600 MG, BID (2 MAL TAGLICH)
     Route: 048
     Dates: start: 20230321, end: 20230325
  2. CLINDAMYCIN HYDROCHLORIDE [Suspect]
     Active Substance: CLINDAMYCIN HYDROCHLORIDE
     Indication: Prophylaxis
  3. CLINDAMYCIN HYDROCHLORIDE [Suspect]
     Active Substance: CLINDAMYCIN HYDROCHLORIDE
     Indication: Orthodontic procedure
  4. METHOTREXATE SODIUM [Concomitant]
     Active Substance: METHOTREXATE SODIUM
     Indication: Rheumatic disorder
     Dosage: UNK
     Route: 065
  5. FOLIC ACID [Concomitant]
     Active Substance: FOLIC ACID
     Indication: Product used for unknown indication
     Dosage: 5 MG, QW (FOLS?URE, 1-0-0 / WOCHE NACH MTX EINNAHME)
     Route: 065
  6. METHOTREXATE SODIUM [Concomitant]
     Active Substance: METHOTREXATE SODIUM
     Indication: Rheumatic disorder
     Dosage: 15 MG, QD (1.5-0-0-0)
     Route: 065

REACTIONS (8)
  - Foreign body in throat [Recovered/Resolved with Sequelae]
  - Oesophagitis chemical [Recovering/Resolving]
  - Odynophagia [Recovering/Resolving]
  - Pharyngeal swelling [Recovering/Resolving]
  - Laryngeal discomfort [Unknown]
  - Oropharyngeal pain [Unknown]
  - Product physical issue [Unknown]
  - Product dosage form issue [Unknown]

NARRATIVE: CASE EVENT DATE: 20230321
